FAERS Safety Report 7054388-6 (Version None)
Quarter: 2010Q4

REPORT INFORMATION
  Report Type: 
  Country: None (occurrence: None)
  Receive Date: 20101015
  Receipt Date: 20101008
  Transmission Date: 20110411
  Serious: Yes (Life-Threatening)
  Sender: FDA-Public Use
  Company Number: 2010EU005327

PATIENT
  Age: 82 Year
  Sex: Male
  Weight: 95 kg

DRUGS (4)
  1. SOLIFENACIN (SOLIFENACIN) TABLET, 5MG [Suspect]
     Indication: HYPERTONIC BLADDER
     Dosage: 5MG, ORAL
     Route: 048
     Dates: start: 20100827, end: 20100911
  2. ASPIRIN (ACETYLSALICYLATE LYSINE) [Concomitant]
  3. NIFEDIPINE [Concomitant]
  4. SIMVASTATIN [Concomitant]

REACTIONS (2)
  - RENAL FAILURE ACUTE [None]
  - URINARY TRACT OBSTRUCTION [None]
